FAERS Safety Report 8287512-8 (Version None)
Quarter: 2012Q2

REPORT INFORMATION
  Report Type: 
  Country: None (occurrence: None)
  Receive Date: 20120416
  Receipt Date: 20120404
  Transmission Date: 20120825
  Serious: Yes (Other)
  Sender: FDA-Public Use
  Company Number: JP-ELI_LILLY_AND_COMPANY-JP201203004492

PATIENT
  Age: 75 Year
  Sex: Male

DRUGS (6)
  1. EMEND [Concomitant]
     Indication: PROPHYLAXIS OF NAUSEA AND VOMITING
  2. ALIMTA [Suspect]
     Indication: NON-SMALL CELL LUNG CANCER
     Route: 042
  3. KYTRIL [Concomitant]
     Indication: PROPHYLAXIS OF NAUSEA AND VOMITING
  4. FOLIC ACID [Concomitant]
  5. CARBOPLATIN [Concomitant]
     Indication: NON-SMALL CELL LUNG CANCER
     Route: 042
  6. VITAMIN B-12 [Concomitant]

REACTIONS (1)
  - ULCER HAEMORRHAGE [None]
